FAERS Safety Report 7097682-5 (Version None)
Quarter: 2010Q4

REPORT INFORMATION
  Report Type: 
  Country: None (occurrence: None)
  Receive Date: 20101112
  Receipt Date: 20101102
  Transmission Date: 20110411
  Serious: Yes (Other)
  Sender: FDA-Public Use
  Company Number: US-BIOGENIDEC-2010BI038148

PATIENT
  Age: 48 Year
  Sex: Female
  Weight: 54 kg

DRUGS (2)
  1. AVONEX [Suspect]
     Indication: MULTIPLE SCLEROSIS
     Route: 030
     Dates: start: 20031001, end: 20101001
  2. AVONEX [Suspect]
     Route: 030
     Dates: start: 20101026

REACTIONS (5)
  - CONVULSION [None]
  - FATIGUE [None]
  - HYPERTENSION [None]
  - MEDICATION ERROR [None]
  - STRESS [None]
